FAERS Safety Report 6599266-1 (Version None)
Quarter: 2010Q1

REPORT INFORMATION
  Report Type: 
  Country: None (occurrence: None)
  Receive Date: 20100224
  Receipt Date: 20100219
  Transmission Date: 20100710
  Serious: Yes (Death, Life-Threatening)
  Sender: FDA-Public Use
  Company Number: PHHY2010FR03314

PATIENT
  Sex: Male
  Weight: 68 kg

DRUGS (5)
  1. GLEEVEC [Suspect]
     Indication: CHRONIC MYELOID LEUKAEMIA
     Dosage: 400 MG, QD
     Route: 048
     Dates: start: 20090101
  2. BARACLUDE [Suspect]
     Indication: HEPATITIS B
     Dosage: 0.05 MG/DAY
     Dates: start: 20081201
  3. ZYPREXA [Suspect]
     Indication: DEPRESSION
     Dosage: UNK
     Dates: start: 20090601
  4. ESCITALOPRAM [Suspect]
     Indication: DEPRESSION
     Dosage: UNK
     Dates: start: 20090601
  5. IMOVANE [Suspect]
     Indication: DEPRESSION
     Dosage: UNK
     Dates: start: 20090601

REACTIONS (3)
  - COMPLETED SUICIDE [None]
  - DYSTHYMIC DISORDER [None]
  - SUICIDE ATTEMPT [None]
